FAERS Safety Report 7030377-2 (Version None)
Quarter: 2010Q4

REPORT INFORMATION
  Report Type: 
  Country: None (occurrence: None)
  Receive Date: 20101001
  Receipt Date: 20090901
  Transmission Date: 20110411
  Serious: Yes (Hospitalization, Other)
  Sender: FDA-Public Use
  Company Number: 2009SP023510

PATIENT
  Age: 37 Year
  Sex: Female
  Weight: 56.6996 kg

DRUGS (1)
  1. NUVARING [Suspect]
     Indication: BLOOD OESTROGEN DECREASED
     Dosage: 1 DF;
     Dates: start: 20070101, end: 20070924

REACTIONS (1)
  - DEEP VEIN THROMBOSIS [None]
